FAERS Safety Report 23409022 (Version 2)
Quarter: 2024Q1

REPORT INFORMATION
  Report Type: Other
  Country: EG (occurrence: EG)
  Receive Date: 20240117
  Receipt Date: 20240123
  Transmission Date: 20240410
  Serious: Yes (Other)
  Sender: FDA-Public Use
  Company Number: EG-002147023-NVSC2023EG252991

PATIENT
  Age: 59 Year
  Sex: Female

DRUGS (10)
  1. LUCENTIS [Suspect]
     Active Substance: RANIBIZUMAB
     Indication: Macular oedema
     Dosage: (IN RIGHT EYE), 10 MILLIGRAM PER MILLILITRE
     Route: 050
     Dates: start: 20231029, end: 20231029
  2. LUCENTIS [Suspect]
     Active Substance: RANIBIZUMAB
     Route: 050
     Dates: start: 20231029
  3. BISOPROLOL FUMARATE [Concomitant]
     Active Substance: BISOPROLOL FUMARATE
     Indication: Cardiac disorder
     Dosage: 1 DOSAGE FORM, QD, (DAILY AT NIGHT, STARTED SINCE 12-13 YEARS AGO OR 2011 TO 2012 AS PER REPORTER)
     Route: 065
  4. BISOPROLOL FUMARATE [Concomitant]
     Active Substance: BISOPROLOL FUMARATE
     Indication: Asthma
  5. ASPIRIN [Concomitant]
     Active Substance: ASPIRIN
     Indication: Cardiac disorder
     Dosage: 1 DOSAGE FORM, QD, (DAILY AT NIGHT, STARTED SINCE 12-13 YEARS AGO OR 2011 TO 2012 AS PER REPORTER)
     Route: 065
  6. ASPIRIN [Concomitant]
     Active Substance: ASPIRIN
     Indication: Asthma
  7. PLAVIX [Concomitant]
     Active Substance: CLOPIDOGREL BISULFATE
     Indication: Cardiac disorder
     Dosage: 1 DOSAGE FORM, QD, (DAILY AT NIGHT, STARTED SINCE 12-13 YEARS AGO OR 2011 TO 2012 AS PER REPORTER)
     Route: 065
  8. PLAVIX [Concomitant]
     Active Substance: CLOPIDOGREL BISULFATE
     Indication: Asthma
  9. AZARGA [Concomitant]
     Active Substance: BRINZOLAMIDE\TIMOLOL MALEATE
     Indication: Iritis
     Dosage: 1 DRP, Q12H, (ONE DROP EVERY 12 HRS DAILY, STARTED SINCE 3 MONTHS AGO (BEFORE STARTING LUCENTIS)
  10. BRIMONIDINE TARTRATE [Concomitant]
     Active Substance: BRIMONIDINE TARTRATE
     Indication: Iritis
     Dosage: 1 DRP, Q12H, STARTED SINCE 3 MONTHS AGO (BEFORE STARTING LUCENTIS)

REACTIONS (3)
  - Intraocular pressure increased [Recovered/Resolved]
  - Atrophy of globe [Not Recovered/Not Resolved]
  - Intraocular pressure increased [Recovering/Resolving]
